FAERS Safety Report 25612723 (Version 2)
Quarter: 2025Q3

REPORT INFORMATION
  Report Type: Report from Study
  Country: EU (occurrence: EU)
  Receive Date: 20250728
  Receipt Date: 20250911
  Transmission Date: 20251020
  Serious: Yes (Other)
  Sender: ASTELLAS
  Company Number: EU-ASTELLAS-2025-AER-039917

PATIENT
  Age: 67 Year
  Sex: Male

DRUGS (6)
  1. ENFORTUMAB VEDOTIN-EJFV [Suspect]
     Active Substance: ENFORTUMAB VEDOTIN-EJFV
     Indication: Transitional cell carcinoma
     Route: 042
     Dates: start: 20240123, end: 20241029
  2. LANSOPRAZOLE [Concomitant]
     Active Substance: LANSOPRAZOLE
     Indication: Gastrointestinal disorder
     Dosage: ONGOING
     Route: 065
     Dates: start: 20230101
  3. perindopril and amlodipine [Concomitant]
     Indication: Hypertension
     Dosage: ONGOING?10/5 MG EVERY OTHER DAY
     Route: 065
     Dates: start: 20230101
  4. TAFLUPROST [Concomitant]
     Active Substance: TAFLUPROST
     Indication: Glaucoma
     Dosage: ONGOING?1 GTT DAILY
     Route: 065
     Dates: start: 20230901
  5. TIMOLOL [Concomitant]
     Active Substance: TIMOLOL
     Indication: Glaucoma
     Dosage: ONGOING?1 GTT DAILY
     Route: 065
     Dates: start: 20230901
  6. BRIMONIDINE [Concomitant]
     Active Substance: BRIMONIDINE TARTRATE
     Indication: Glaucoma
     Dosage: ONGOING?1 GTT DAILY
     Route: 065
     Dates: start: 20230901

REACTIONS (1)
  - Gastrointestinal toxicity [Not Recovered/Not Resolved]

NARRATIVE: CASE EVENT DATE: 20240423
